FAERS Safety Report 8882870 (Version 1)
Quarter: 2012Q4

REPORT INFORMATION
  Report Type: 
  Country: KR (occurrence: KR)
  Receive Date: 20121105
  Receipt Date: 20121105
  Transmission Date: 20130627
  Serious: Yes (Other)
  Sender: FDA-Public Use
  Company Number: KR-JNJFOC-20121016606

PATIENT

DRUGS (2)
  1. INFLIXIMAB, RECOMBINANT [Suspect]
     Indication: CROHN^S DISEASE
     Dosage: on week 0, 2, 6 and then every 8 weeks thereafter
     Route: 042
  2. INFLIXIMAB, RECOMBINANT [Suspect]
     Indication: CROHN^S DISEASE
     Dosage: on week 0, 2, 6 and then every 8 weeks thereafter
     Route: 042

REACTIONS (4)
  - Infusion related reaction [Unknown]
  - Serum sickness-like reaction [Unknown]
  - Tuberculosis [Unknown]
  - Pancreatitis necrotising [Unknown]
